FAERS Safety Report 7704700-7 (Version None)
Quarter: 2011Q3

REPORT INFORMATION
  Report Type: 
  Country: None (occurrence: None)
  Receive Date: 20110823
  Receipt Date: 20110819
  Transmission Date: 20111222
  Serious: Yes (Hospitalization, Other)
  Sender: FDA-Public Use
  Company Number: IT-ABBOTT-11P-083-0844371-00

PATIENT
  Sex: Male
  Weight: 94 kg

DRUGS (4)
  1. MEDROL [Concomitant]
     Indication: PRODUCT USED FOR UNKNOWN INDICATION
     Route: 048
  2. HUMIRA [Suspect]
     Indication: PSORIATIC ARTHROPATHY
     Dosage: 80 MG X MONTHS
     Route: 058
     Dates: start: 20050901, end: 20110531
  3. ARCOXIA [Concomitant]
     Indication: PRODUCT USED FOR UNKNOWN INDICATION
     Route: 048
     Dates: start: 20050501, end: 20110801
  4. SULFASALAZINE [Suspect]
     Indication: PSORIATIC ARTHROPATHY
     Dosage: 2 GRAMS DAILY
     Route: 048
     Dates: start: 20071101, end: 20110801

REACTIONS (5)
  - SKIN HYPERTROPHY [None]
  - INJURY [None]
  - MALIGNANT MELANOMA [None]
  - MELANOCYTIC NAEVUS [None]
  - LYMPHADENOPATHY [None]
